FAERS Safety Report 6156849-0 (Version None)
Quarter: 2009Q2

REPORT INFORMATION
  Report Type: 
  Country: None (occurrence: None)
  Receive Date: 20090416
  Receipt Date: 20090407
  Transmission Date: 20091009
  Serious: Yes (Other)
  Sender: FDA-Public Use
  Company Number: US-ELI_LILLY_AND_COMPANY-US200904002289

PATIENT
  Age: 77 Year
  Sex: Female

DRUGS (14)
  1. CYMBALTA [Suspect]
     Indication: ARTHRALGIA
     Dosage: 60 MG, DAILY (1/D)
     Route: 048
  2. DIOVAN [Concomitant]
     Dosage: 160 MG, DAILY (1/D)
  3. METOPROLOL TARTRATE [Concomitant]
     Dosage: 100 MG, 2/D
     Route: 048
  4. PROTONIX [Concomitant]
     Dosage: 40 MG, DAILY (1/D)
  5. LIPITOR [Concomitant]
     Dosage: 40 MG, DAILY (1/D)
     Route: 048
  6. ZETIA [Concomitant]
     Dosage: 10 MG, DAILY (1/D)
     Route: 048
  7. ATIVAN [Concomitant]
     Dosage: 5 MG, DAILY (1/D)
  8. METOTREXATO [Concomitant]
     Dosage: 6 ML, UNK
  9. LORTAB [Concomitant]
     Dosage: 10 MG, 3/D
  10. FLONASE [Concomitant]
  11. TRICOR [Concomitant]
     Dosage: 145 MG, DAILY (1/D)
  12. NITROGLYCERIN [Concomitant]
     Dosage: 2.5 MG, 2/D
     Route: 060
  13. NITROGLYCERIN [Concomitant]
     Dosage: UNK, AS NEEDED
     Route: 060
  14. ASPIRIN [Concomitant]
     Dosage: 5 G, UNK
     Route: 048

REACTIONS (1)
  - GLOMERULAR FILTRATION RATE DECREASED [None]
